FAERS Safety Report 10415376 (Version 1)
Quarter: 2014Q2

REPORT INFORMATION
  Report Type: Spontaneous
  Country: US (occurrence: None)
  Receive Date: 20140604
  Receipt Date: 20140604
  Transmission Date: 20141212
  Serious: Yes (Hospitalization)
  Sender: FDA-Public Use
  Company Number: 20120419CINRY2891

PATIENT
  Age: 46 Year
  Sex: Female
  Weight: 70.76 kg

DRUGS (2)
  1. CINRYZE [Suspect]
     Indication: HEREDITARY ANGIOEDEMA
     Dates: start: 20120330, end: 20120330
  2. KALBITOR [Suspect]
     Indication: HEREDITARY ANGIOEDEMA
     Route: 058

REACTIONS (2)
  - Hereditary angioedema [None]
  - Off label use [None]
